FAERS Safety Report 4385586-8 (Version None)
Quarter: 2004Q2

REPORT INFORMATION
  Report Type: 
  Country: None (occurrence: None)
  Receive Date: 20040628
  Receipt Date: 20040513
  Transmission Date: 20050107
  Serious: Yes (Death)
  Sender: FDA-Public Use
  Company Number: PHEH2004US05300

PATIENT

DRUGS (1)
  1. ZELNORM [Suspect]

REACTIONS (2)
  - DEATH [None]
  - DIARRHOEA [None]
